FAERS Safety Report 13014238 (Version 1)
Quarter: 2016Q4

REPORT INFORMATION
  Report Type: Report from Study
  Country: None (occurrence: BR)
  Receive Date: 20161209
  Receipt Date: 20161209
  Transmission Date: 20170207
  Serious: Yes (Hospitalization, Other)
  Sender: FDA-Public Use
  Company Number: BR-ABBVIE-16P-020-1805966-00

PATIENT
  Sex: Male
  Weight: 115 kg

DRUGS (3)
  1. LIPIDIL [Suspect]
     Active Substance: FENOFIBRATE
     Route: 065
     Dates: start: 2016, end: 2016
  2. LIPIDIL [Suspect]
     Active Substance: FENOFIBRATE
     Indication: BLOOD TRIGLYCERIDES ABNORMAL
     Dosage: REPORTER DOES NOT KNOW DATA ABOUT THE THERAPY
     Route: 048
  3. LIPIDIL [Suspect]
     Active Substance: FENOFIBRATE
     Route: 065

REACTIONS (8)
  - Weight decreased [Unknown]
  - Blood triglycerides increased [Unknown]
  - Blood cholesterol increased [Unknown]
  - Diabetic metabolic decompensation [Unknown]
  - Pancreatitis [Unknown]
  - Diabetes mellitus [Not Recovered/Not Resolved]
  - Vision blurred [Unknown]
  - Blood glucose increased [Unknown]

NARRATIVE: CASE EVENT DATE: 2014
